FAERS Safety Report 6398211-1 (Version None)
Quarter: 2009Q4

REPORT INFORMATION
  Report Type: 
  Country: None (occurrence: None)
  Receive Date: 20091013
  Receipt Date: 20090929
  Transmission Date: 20100525
  Serious: Yes (Other)
  Sender: FDA-Public Use
  Company Number: PHHY2009DE13173

PATIENT
  Sex: Female

DRUGS (5)
  1. LEPONEX [Suspect]
     Indication: SCHIZOPHRENIA
     Dosage: 200 MG/DAY
     Route: 048
  2. LEPONEX [Suspect]
     Dosage: 50 MG DAILY
  3. LEPONEX [Suspect]
     Dosage: 100 MG PER DAY
  4. NOVALGIN [Concomitant]
     Dosage: UNK
  5. ELOBACT [Concomitant]
     Indication: BRONCHITIS
     Dosage: 1000 MG PER DAY

REACTIONS (7)
  - ABDOMINAL OPERATION [None]
  - DRUG WITHDRAWAL SYNDROME [None]
  - FEELING ABNORMAL [None]
  - LISTLESS [None]
  - RESPIRATORY DISORDER [None]
  - URINARY TRACT INFECTION [None]
  - URTICARIA [None]
